FAERS Safety Report 5416812-1 (Version None)
Quarter: 2007Q3

REPORT INFORMATION
  Report Type: 
  Country: None (occurrence: None)
  Receive Date: 20070816
  Receipt Date: 20070807
  Transmission Date: 20080115
  Serious: Yes (Disabling, Other)
  Sender: FDA-Public Use
  Company Number: CA-ROCHE-483528

PATIENT
  Age: 33 Year
  Sex: Female

DRUGS (3)
  1. ACCUTANE [Suspect]
     Indication: ACNE
     Route: 048
     Dates: start: 19991201
  2. ACCUTANE [Suspect]
     Route: 048
     Dates: end: 20000101
  3. ADVIL COLD AND SINUS [Concomitant]

REACTIONS (26)
  - ANGER [None]
  - ARTHRALGIA [None]
  - ARTHRITIS [None]
  - DEPRESSION [None]
  - DISTURBANCE IN ATTENTION [None]
  - DIZZINESS [None]
  - DRY EYE [None]
  - DRY SKIN [None]
  - EMOTIONAL DISTRESS [None]
  - EYE PAIN [None]
  - FASCIITIS [None]
  - FATIGUE [None]
  - HEADACHE [None]
  - HYPOAESTHESIA [None]
  - JOINT STIFFNESS [None]
  - LIP DRY [None]
  - MEMORY IMPAIRMENT [None]
  - MOOD SWINGS [None]
  - NASAL DRYNESS [None]
  - OPTIC NEURITIS [None]
  - PAIN [None]
  - PALPITATIONS [None]
  - PSYCHOTIC DISORDER [None]
  - STRESS [None]
  - TACHYCARDIA [None]
  - VISUAL DISTURBANCE [None]
